FAERS Safety Report 5147729-8 (Version None)
Quarter: 2006Q4

REPORT INFORMATION
  Report Type: 
  Country: None (occurrence: None)
  Receive Date: 20061110
  Receipt Date: 20061028
  Transmission Date: 20070319
  Serious: Yes (Other)
  Sender: FDA-Public Use
  Company Number: PHEH2006US13521

PATIENT
  Age: 49 Year
  Sex: Male

DRUGS (1)
  1. TRILEPTAL [Suspect]
     Indication: EPILEPSY

REACTIONS (3)
  - BRAIN OPERATION [None]
  - CEREBROVASCULAR ACCIDENT [None]
  - CONVULSION [None]
